FAERS Safety Report 5845243-5 (Version None)
Quarter: 2008Q3

REPORT INFORMATION
  Report Type: 
  Country: None (occurrence: None)
  Receive Date: 20080814
  Receipt Date: 20080808
  Transmission Date: 20090109
  Serious: Yes (Other)
  Sender: FDA-Public Use
  Company Number: B0532341A

PATIENT
  Age: 25 Year
  Sex: Female

DRUGS (3)
  1. SERETIDE [Suspect]
     Indication: ASTHMA
     Dosage: 2PUFF TWICE PER DAY
     Route: 055
     Dates: start: 20050101
  2. VENTOLIN [Suspect]
     Indication: ASTHMA
     Dosage: 100MCG AS REQUIRED
     Route: 055
  3. NO CONCURRENT MEDICATION [Concomitant]

REACTIONS (7)
  - ASTHMA [None]
  - COUGH [None]
  - DYSPNOEA [None]
  - MALAISE [None]
  - MIDDLE INSOMNIA [None]
  - NASOPHARYNGITIS [None]
  - WHEEZING [None]
